FAERS Safety Report 9648715 (Version 1)
Quarter: 2013Q4

REPORT INFORMATION
  Report Type: Spontaneous
  Country: US (occurrence: US)
  Receive Date: 20131028
  Receipt Date: 20131028
  Transmission Date: 20140711
  Serious: No
  Sender: FDA-Public Use
  Company Number: US-BAUSCH-BL-2013-005384

PATIENT
  Age: 88 Year
  Sex: Female

DRUGS (1)
  1. PROLENSA (BROMFENAC OPHTHALMIC SOLUTION) 0.07% [Suspect]
     Indication: MACULOPATHY
     Dosage: ONE DROP INTO LEFT EYE AT BEDTIME
     Route: 047
     Dates: start: 20131001, end: 20131002

REACTIONS (2)
  - Off label use [Recovered/Resolved]
  - Visual impairment [Not Recovered/Not Resolved]
